FAERS Safety Report 15345409 (Version 2)
Quarter: 2018Q3

REPORT INFORMATION
  Report Type: Spontaneous
  Country: US (occurrence: US)
  Receive Date: 20180903
  Receipt Date: 20180912
  Transmission Date: 20181010
  Serious: Yes (Hospitalization)
  Sender: FDA-Public Use
  Company Number: US-SHIRE-US201833484

PATIENT
  Age: 74 Year
  Sex: Male

DRUGS (2)
  1. GATTEX [Suspect]
     Active Substance: TEDUGLUTIDE\WATER
     Dosage: 0.31 UNKNOWN UNITS, 1X/DAY:QD
     Route: 065
     Dates: end: 20180814
  2. GATTEX [Suspect]
     Active Substance: TEDUGLUTIDE\WATER
     Indication: SHORT-BOWEL SYNDROME
     Dosage: 0.31 UNKNOWN UNITS, 1X/DAY:QD
     Route: 065
     Dates: start: 20170901, end: 20180804

REACTIONS (3)
  - Drug dose omission [Recovered/Resolved]
  - Dyspnoea [Unknown]
  - Gallbladder disorder [Recovered/Resolved]

NARRATIVE: CASE EVENT DATE: 20180804
